FAERS Safety Report 6089769-0 (Version None)
Quarter: 2009Q1

REPORT INFORMATION
  Report Type: 
  Country: None (occurrence: None)
  Receive Date: 20090224
  Receipt Date: 20090209
  Transmission Date: 20090719
  Serious: Yes (Life-Threatening)
  Sender: FDA-Public Use
  Company Number: BE-GENENTECH-277428

PATIENT
  Sex: Female

DRUGS (7)
  1. RITUXIMAB [Suspect]
     Indication: DIFFUSE LARGE B-CELL LYMPHOMA
     Dosage: 518 MG, QD
     Route: 042
     Dates: start: 20081208, end: 20090108
  2. SOLU-MEDROL [Suspect]
     Indication: DIFFUSE LARGE B-CELL LYMPHOMA
     Dosage: 40 MG, BID
     Route: 042
     Dates: start: 20081208, end: 20090108
  3. DOXORUBICIN HCL [Suspect]
     Indication: DIFFUSE LARGE B-CELL LYMPHOMA
     Dosage: 52 MG, QD
     Route: 042
     Dates: start: 20081209, end: 20090108
  4. CYCLOPHOSPHAMIDE [Suspect]
     Indication: DIFFUSE LARGE B-CELL LYMPHOMA
     Dosage: 1656 MG, QD
     Route: 042
     Dates: start: 20081209, end: 20090108
  5. BLEOMYCIN [Suspect]
     Indication: DIFFUSE LARGE B-CELL LYMPHOMA
     Dosage: 10 MG, QD
     Route: 042
     Dates: start: 20081209, end: 20090108
  6. METHOTREXATE [Suspect]
     Indication: DIFFUSE LARGE B-CELL LYMPHOMA
     Dosage: 10 MG, QD
     Route: 042
     Dates: start: 20081212, end: 20090108
  7. VINDESINE [Suspect]
     Indication: DIFFUSE LARGE B-CELL LYMPHOMA
     Dosage: 2.76 MG, QD
     Route: 042
     Dates: start: 20081226, end: 20090108

REACTIONS (1)
  - GASTROINTESTINAL HAEMORRHAGE [None]
